FAERS Safety Report 24184479 (Version 3)
Quarter: 2025Q2

REPORT INFORMATION
  Report Type: Spontaneous
  Country: US (occurrence: US)
  Receive Date: 20240807
  Receipt Date: 20250501
  Transmission Date: 20250717
  Serious: No
  Sender: PFIZER
  Company Number: US-PFIZER INC-202400230516

PATIENT
  Age: 72 Year
  Sex: Male

DRUGS (1)
  1. CIBINQO [Suspect]
     Active Substance: ABROCITINIB

REACTIONS (5)
  - Nasopharyngitis [Unknown]
  - Speech disorder [Unknown]
  - Rash [Unknown]
  - Infection [Unknown]
  - Pain [Unknown]
